FAERS Safety Report 13838592 (Version 1)
Quarter: 2017Q3

REPORT INFORMATION
  Report Type: Spontaneous
  Country: US (occurrence: US)
  Receive Date: 20170804
  Receipt Date: 20170804
  Transmission Date: 20171127
  Serious: Yes (Life-Threatening, Other)
  Sender: FDA-Public Use
  Company Number: None

PATIENT
  Age: 70 Year
  Sex: Female
  Weight: 99.9 kg

DRUGS (5)
  1. NITROFURANTOIN MONO [Suspect]
     Active Substance: NITROFURANTOIN
     Indication: URINARY TRACT INFECTION
     Dosage: ?          OTHER STRENGTH:MCR;QUANTITY:14 TABLET(S);?
     Route: 048
     Dates: start: 20170727, end: 20170803
  2. STOMACH MEDS [Concomitant]
  3. COQ10 [Concomitant]
     Active Substance: UBIDECARENONE
  4. FLUID PILL [Concomitant]
  5. BLOOD PRESSURE MEDS [Concomitant]

REACTIONS (5)
  - Urticaria [None]
  - Erythema [None]
  - Eyelid oedema [None]
  - Pruritus [None]
  - Lip swelling [None]

NARRATIVE: CASE EVENT DATE: 20170803
